FAERS Safety Report 5392443-7 (Version None)
Quarter: 2007Q3

REPORT INFORMATION
  Report Type: 
  Country: None (occurrence: None)
  Receive Date: 20070720
  Receipt Date: 20070709
  Transmission Date: 20080115
  Serious: Yes (Hospitalization)
  Sender: FDA-Public Use
  Company Number: US-ROCHE-506241

PATIENT
  Age: 34 Year
  Sex: Female

DRUGS (3)
  1. BONIVA [Suspect]
     Indication: OSTEOPOROSIS
     Route: 065
     Dates: end: 20061101
  2. BONIVA [Suspect]
     Route: 065
     Dates: start: 20070704, end: 20070704
  3. STEROID NOS [Concomitant]
     Indication: ADDISON'S DISEASE

REACTIONS (1)
  - HEPATITIS ACUTE [None]
